FAERS Safety Report 13914551 (Version 1)
Quarter: 2017Q3

REPORT INFORMATION
  Report Type: Spontaneous
  Country: US (occurrence: US)
  Receive Date: 20170828
  Receipt Date: 20170828
  Transmission Date: 20171127
  Serious: Yes (Other)
  Sender: FDA-Public Use
  Company Number: US-IMPAX LABORATORIES, INC-2017-IPXL-02490

PATIENT
  Age: 68 Year
  Sex: Male

DRUGS (2)
  1. DOXYCYCLINE HYCLATE DELAYED RELEASE [Suspect]
     Active Substance: DOXYCYCLINE HYCLATE
     Indication: LYME DISEASE
     Dosage: UNK
     Route: 065
  2. DOXYCYCLINE HYCLATE DELAYED RELEASE [Suspect]
     Active Substance: DOXYCYCLINE HYCLATE
     Indication: PRODUCT USE IN UNAPPROVED INDICATION

REACTIONS (5)
  - Neuroborreliosis [Unknown]
  - Restrictive pulmonary disease [Unknown]
  - Diaphragmatic paralysis [Unknown]
  - Drug ineffective for unapproved indication [Unknown]
  - Atelectasis [Unknown]
